FAERS Safety Report 14673777 (Version 1)
Quarter: 2018Q1

REPORT INFORMATION
  Report Type: Spontaneous
  Country: US (occurrence: US)
  Receive Date: 20180323
  Receipt Date: 20180323
  Transmission Date: 20180509
  Serious: Yes (Death, Other)
  Sender: FDA-Public Use
  Company Number: US-PFIZER INC-2018121432

PATIENT
  Age: 78 Year
  Sex: Male

DRUGS (1)
  1. LOPID [Suspect]
     Active Substance: GEMFIBROZIL
     Dosage: UNK

REACTIONS (1)
  - Death [Fatal]
